FAERS Safety Report 24618304 (Version 1)
Quarter: 2024Q4

REPORT INFORMATION
  Report Type: Spontaneous
  Country: US (occurrence: US)
  Receive Date: 20241114
  Receipt Date: 20241114
  Transmission Date: 20250115
  Serious: No
  Sender: PAREXEL
  Company Number: US-HISAMITSU PHARMACEUTICAL CO., INC.-2024-NOV-US000153

PATIENT
  Sex: Female

DRUGS (1)
  1. ASENAPINE [Suspect]
     Active Substance: ASENAPINE
     Indication: Product used for unknown indication
     Dosage: UNKNOWN
     Route: 065

REACTIONS (1)
  - Burn oral cavity [Unknown]
